FAERS Safety Report 13383278 (Version 1)
Quarter: 2017Q1

REPORT INFORMATION
  Report Type: Spontaneous
  Country: US (occurrence: US)
  Receive Date: 20170329
  Receipt Date: 20170329
  Transmission Date: 20170429
  Serious: No
  Sender: FDA-Public Use
  Company Number: US-RISING PHARMACEUTICALS, INC.-2016RIS00150

PATIENT
  Age: 94 Year
  Sex: Male
  Weight: 56.69 kg

DRUGS (2)
  1. UNSPECIFIED MEDICATIONS [Concomitant]
     Active Substance: UNSPECIFIED INGREDIENT
  2. OFLOXACIN. [Suspect]
     Active Substance: OFLOXACIN
     Indication: EYE IRRITATION
     Dosage: 1 DROP, AS NEEDED
     Route: 047

REACTIONS (3)
  - Eye irritation [Recovered/Resolved]
  - Vitreous floaters [Not Recovered/Not Resolved]
  - Product use issue [Unknown]

NARRATIVE: CASE EVENT DATE: 20160923
